FAERS Safety Report 12274835 (Version 1)
Quarter: 2016Q2

REPORT INFORMATION
  Report Type: Spontaneous
  Country: US (occurrence: US)
  Receive Date: 20160415
  Receipt Date: 20160415
  Transmission Date: 20160815
  Serious: No
  Sender: FDA-Public Use
  Company Number: US-ALLERGAN-1602213US

PATIENT
  Age: 47 Year
  Sex: Female
  Weight: 58.96 kg

DRUGS (3)
  1. LATISSE [Suspect]
     Active Substance: BIMATOPROST
     Dosage: UNK UNK, QD
     Route: 061
     Dates: start: 201511
  2. LATISSE [Suspect]
     Active Substance: BIMATOPROST
     Indication: GROWTH OF EYELASHES
     Dosage: 2 GTT, QHS
     Route: 061
     Dates: start: 201511
  3. SUMATRIPTAN. [Concomitant]
     Active Substance: SUMATRIPTAN
     Indication: MIGRAINE
     Dosage: UNK UNK, PRN

REACTIONS (3)
  - Madarosis [Not Recovered/Not Resolved]
  - Wrong technique in product usage process [Unknown]
  - Drug administered at inappropriate site [Unknown]

NARRATIVE: CASE EVENT DATE: 201511
